FAERS Safety Report 23640866 (Version 1)
Quarter: 2024Q1

REPORT INFORMATION
  Report Type: Spontaneous
  Country: FR (occurrence: FR)
  Receive Date: 20240318
  Receipt Date: 20240318
  Transmission Date: 20240409
  Serious: Yes (Other)
  Sender: FDA-Public Use
  Company Number: FR-FreseniusKabiFK-202321237

PATIENT
  Age: 53 Year
  Sex: Female

DRUGS (9)
  1. BUSULFAN [Suspect]
     Active Substance: BUSULFAN
     Indication: Acute myeloid leukaemia
     Dosage: MYELOABLATIVE CONDITIONING
  2. THIOTEPA [Suspect]
     Active Substance: THIOTEPA
     Indication: Acute myeloid leukaemia
     Dosage: MYELOABLATIVE  CONDITIONING
  3. ETOPOSIDE [Concomitant]
     Active Substance: ETOPOSIDE
     Indication: Acute myeloid leukaemia
  4. AZACITIDINE [Concomitant]
     Active Substance: AZACITIDINE
     Indication: Acute myeloid leukaemia
     Dosage: 2 COURSES
  5. AMSACRINE [Concomitant]
     Active Substance: AMSACRINE
     Indication: Acute myeloid leukaemia
  6. CYTARABINE [Concomitant]
     Active Substance: CYTARABINE
     Indication: Acute myeloid leukaemia
     Dosage: HIGH-DOSE CYTARABINE
  7. CYCLOSPORINE [Concomitant]
     Active Substance: CYCLOSPORINE
     Indication: Prophylaxis against graft versus host disease
  8. GEMTUZUMAB OZOGAMICIN [Concomitant]
     Active Substance: GEMTUZUMAB OZOGAMICIN
     Indication: Acute myeloid leukaemia
  9. FLUDARABINE [Concomitant]
     Active Substance: FLUDARABINE PHOSPHATE
     Indication: Acute myeloid leukaemia
     Dosage: MYELOABLATIVE CONDITIONING

REACTIONS (1)
  - Pulmonary veno-occlusive disease [Recovering/Resolving]
